FAERS Safety Report 4594228-8 (Version None)
Quarter: 2005Q1

REPORT INFORMATION
  Report Type: 
  Country: None (occurrence: None)
  Receive Date: 20050301
  Receipt Date: 20040802
  Transmission Date: 20050727
  Serious: No
  Sender: FDA-Public Use
  Company Number: US-GLAXOSMITHKLINE-A0520554A

PATIENT
  Age: 61 Year
  Sex: Female

DRUGS (3)
  1. VALTREX [Suspect]
     Indication: SKIN LESION
     Dosage: 500MG PER DAY
     Route: 048
     Dates: start: 20031204, end: 20040401
  2. PREMARIN [Concomitant]
  3. FOSAMAX [Concomitant]

REACTIONS (1)
  - MALAISE [None]
